FAERS Safety Report 7855463-6 (Version None)
Quarter: 2011Q4

REPORT INFORMATION
  Report Type: 
  Country: None (occurrence: None)
  Receive Date: 20111026
  Receipt Date: 20111011
  Transmission Date: 20120403
  Serious: Yes (Other)
  Sender: FDA-Public Use
  Company Number: CL-WATSON-2011-17151

PATIENT
  Age: 28 Year
  Sex: Male

DRUGS (1)
  1. CYCLOSPORINE [Suspect]
     Indication: GRAFT VERSUS HOST DISEASE

REACTIONS (1)
  - THROMBOTIC THROMBOCYTOPENIC PURPURA [None]
